FAERS Safety Report 13298029 (Version 1)
Quarter: 2017Q1

REPORT INFORMATION
  Report Type: Spontaneous
  Country: US (occurrence: US)
  Receive Date: 20170303
  Receipt Date: 20170303
  Transmission Date: 20170428
  Serious: Yes (Death)
  Sender: FDA-Public Use
  Company Number: None

PATIENT
  Age: 63 Year
  Sex: Male

DRUGS (1)
  1. THALOMID [Suspect]
     Active Substance: THALIDOMIDE
     Indication: PLASMA CELL LEUKAEMIA
     Route: 048
     Dates: start: 20170210

REACTIONS (6)
  - Dyspnoea [None]
  - Tachycardia [None]
  - Disseminated intravascular coagulation [None]
  - Multiple organ dysfunction syndrome [None]
  - Urine output decreased [None]
  - Ischaemic hepatitis [None]

NARRATIVE: CASE EVENT DATE: 20170219
